FAERS Safety Report 14187747 (Version 3)
Quarter: 2018Q3

REPORT INFORMATION
  Report Type: Spontaneous
  Country: US (occurrence: US)
  Receive Date: 20171114
  Receipt Date: 20180807
  Transmission Date: 20181010
  Serious: No
  Sender: FDA-Public Use
  Company Number: US-BAUSCH-BL-2017-007685

PATIENT

DRUGS (2)
  1. SUN SHIELD BROAD SPECTRUM SPF 50 MATTE SUNSCREEN [Suspect]
     Active Substance: OCTINOXATE\ZINC OXIDE
     Indication: PRODUCT USED FOR UNKNOWN INDICATION
     Route: 065
  2. TRETINOIN CREAM 0.025% [Suspect]
     Active Substance: TRETINOIN
     Indication: PRODUCT USED FOR UNKNOWN INDICATION
     Route: 065

REACTIONS (4)
  - Product odour abnormal [Unknown]
  - Skin burning sensation [Unknown]
  - Dry skin [Unknown]
  - Product quality issue [Unknown]
